FAERS Safety Report 7240810-9 (Version None)
Quarter: 2011Q1

REPORT INFORMATION
  Report Type: 
  Country: None (occurrence: None)
  Receive Date: 20110120
  Receipt Date: 20110120
  Transmission Date: 20110831
  Serious: Yes (Life-Threatening, Other)
  Sender: FDA-Public Use
  Company Number: None

PATIENT
  Age: 83 Year
  Sex: Female
  Weight: 78.4723 kg

DRUGS (2)
  1. ADVAIR DISKUS 250/50 [Suspect]
     Indication: ASTHMA
     Dosage: ONE BRATHE IN PM 1 TIME/D ORAL
     Route: 048
     Dates: start: 20100201, end: 20101001
  2. FLUTICASONE PROPIONATE [Suspect]
     Dosage: ONE SPRAY IN NOSTRIL AT BEDTIME NASAL
     Route: 045
     Dates: start: 20100601, end: 20101001

REACTIONS (1)
  - CANDIDIASIS [None]
